FAERS Safety Report 20257626 (Version 1)
Quarter: 2021Q4

REPORT INFORMATION
  Report Type: Spontaneous
  Country: IN (occurrence: IN)
  Receive Date: 20211230
  Receipt Date: 20211230
  Transmission Date: 20220304
  Serious: No
  Sender: FDA-Public Use
  Company Number: IN-LUPIN LIMITED-2021-25897

PATIENT
  Age: 26 Year
  Sex: Female

DRUGS (2)
  1. METFORMIN [Suspect]
     Active Substance: METFORMIN HYDROCHLORIDE
     Indication: Diabetes mellitus
     Dosage: UNK
     Route: 065
  2. SITAGLIPTIN [Suspect]
     Active Substance: SITAGLIPTIN
     Indication: Diabetes mellitus
     Dosage: UNK
     Route: 065

REACTIONS (1)
  - Gastrointestinal disorder [Unknown]
